FAERS Safety Report 7569709-5 (Version None)
Quarter: 2011Q2

REPORT INFORMATION
  Report Type: 
  Country: None (occurrence: None)
  Receive Date: 20110624
  Receipt Date: 20110622
  Transmission Date: 20111010
  Serious: No
  Sender: FDA-Public Use
  Company Number: US-PFIZER INC-2011139458

PATIENT
  Sex: Female
  Weight: 58.957 kg

DRUGS (4)
  1. VENLAFAXINE HCL [Suspect]
     Indication: OBSESSIVE-COMPULSIVE DISORDER
     Dosage: 150 MG, DAILY
     Dates: start: 20110610, end: 20110616
  2. ATIVAN [Concomitant]
     Indication: ANXIETY
     Dosage: UNK
  3. VENLAFAXINE HCL [Suspect]
     Indication: ANXIETY
  4. SYNTHROID [Concomitant]
     Indication: THYROID CANCER
     Dosage: 0.5 MG, DAILY

REACTIONS (5)
  - MALAISE [None]
  - DIZZINESS [None]
  - DRUG INEFFECTIVE [None]
  - HEADACHE [None]
  - NAUSEA [None]
